FAERS Safety Report 4315618-4 (Version None)
Quarter: 2004Q1

REPORT INFORMATION
  Report Type: 
  Country: None (occurrence: None)
  Receive Date: 20040311
  Receipt Date: 20040204
  Transmission Date: 20041129
  Serious: Yes (Hospitalization, Other)
  Sender: FDA-Public Use
  Company Number: US-GLAXOSMITHKLINE-A0496778A

PATIENT
  Age: 46 Year
  Sex: Male
  Weight: 95.5 kg

DRUGS (3)
  1. WELLBUTRIN [Suspect]
     Indication: DEPRESSION
     Route: 048
     Dates: end: 20040204
  2. ZYPREXA [Concomitant]
     Dosage: 15MG PER DAY
     Route: 048
     Dates: start: 20010401
  3. CELEXA [Concomitant]
     Dosage: 40MG PER DAY
     Route: 048
     Dates: start: 20000601

REACTIONS (6)
  - AMNESIA [None]
  - ELECTROENCEPHALOGRAM ABNORMAL [None]
  - GRAND MAL CONVULSION [None]
  - MEDICATION ERROR [None]
  - POSTICTAL STATE [None]
  - TONGUE BITING [None]
